FAERS Safety Report 4679522-4 (Version None)
Quarter: 2005Q2

REPORT INFORMATION
  Report Type: 
  Country: None (occurrence: None)
  Receive Date: 20050602
  Receipt Date: 20050520
  Transmission Date: 20051028
  Serious: Yes (Hospitalization, Other)
  Sender: FDA-Public Use
  Company Number: GB-JNJFOC-20041100499

PATIENT
  Sex: Male
  Weight: 83.6 kg

DRUGS (9)
  1. REMICADE [Suspect]
     Dosage: 3 MG/KG
     Route: 042
  2. REMICADE [Suspect]
     Indication: RHEUMATOID ARTHRITIS
     Route: 042
  3. ZOPICLONE [Suspect]
     Indication: INSOMNIA
     Route: 049
  4. METHOTREXATE [Concomitant]
     Route: 058
  5. PREDNISOLONE [Concomitant]
     Route: 065
  6. DICLOFENAC [Concomitant]
     Route: 065
  7. FOSAMAX [Concomitant]
     Route: 065
  8. SOLPADOL [Concomitant]
     Route: 065
  9. SOLPADOL [Concomitant]
     Route: 065

REACTIONS (4)
  - BRONCHOSPASM [None]
  - OEDEMA PERIPHERAL [None]
  - RASH GENERALISED [None]
  - SWELLING FACE [None]
